FAERS Safety Report 18364886 (Version 2)
Quarter: 2020Q4

REPORT INFORMATION
  Report Type: Spontaneous
  Country: DE (occurrence: DE)
  Receive Date: 20201009
  Receipt Date: 20201021
  Transmission Date: 20210114
  Serious: Yes (Other)
  Sender: FDA-Public Use
  Company Number: DE-BRISTOL-MYERS SQUIBB COMPANY-BMS-2020-081983

PATIENT
  Age: 80 Year
  Sex: Male
  Weight: 110 kg

DRUGS (2)
  1. BISOPROLOL [Concomitant]
     Active Substance: BISOPROLOL
     Indication: PRODUCT USED FOR UNKNOWN INDICATION
     Dosage: UNK
     Route: 065
  2. ELIQUIS [Suspect]
     Active Substance: APIXABAN
     Indication: CEREBROVASCULAR ACCIDENT PROPHYLAXIS
     Dosage: 5 MILLIGRAM, BID
     Route: 065
     Dates: start: 20180820

REACTIONS (7)
  - Pyrexia [Unknown]
  - Thrombocytopenia [Unknown]
  - Post procedural haemorrhage [Unknown]
  - Dyspnoea [Unknown]
  - Traumatic haemorrhage [Unknown]
  - Tooth disorder [Unknown]
  - Gamma-glutamyltransferase increased [Unknown]
